FAERS Safety Report 9260492 (Version 1)
Quarter: 2013Q2

REPORT INFORMATION
  Report Type: Spontaneous
  Country: US (occurrence: US)
  Receive Date: 20130429
  Receipt Date: 20130429
  Transmission Date: 20140414
  Serious: Yes (Hospitalization)
  Sender: FDA-Public Use
  Company Number: US-SANOFI-AVENTIS-2013SA042767

PATIENT
  Age: 80 Year
  Sex: Female
  Weight: 59 kg

DRUGS (11)
  1. LOVENOX [Suspect]
     Indication: DEEP VEIN THROMBOSIS
     Route: 058
     Dates: start: 20130315, end: 20130401
  2. CRIZOTINIB [Concomitant]
     Indication: NON-SMALL CELL LUNG CANCER
     Route: 048
     Dates: start: 20110624, end: 20130314
  3. CRIZOTINIB [Concomitant]
     Indication: NON-SMALL CELL LUNG CANCER
     Route: 048
     Dates: start: 20130315
  4. BUMEX [Concomitant]
     Dates: start: 2011
  5. ALDACTONE [Concomitant]
     Dates: start: 2012
  6. SYNTHROID [Concomitant]
     Dates: start: 20120607
  7. ATIVAN [Concomitant]
     Dates: start: 201301
  8. ZOFRAN [Concomitant]
     Dates: start: 2011
  9. LIPITOR [Concomitant]
     Dates: start: 20130319
  10. NORCO [Concomitant]
  11. ASPIRIN [Concomitant]
     Indication: TRANSIENT ISCHAEMIC ATTACK
     Dates: start: 20130317

REACTIONS (2)
  - Fall [Unknown]
  - Haematoma [Recovered/Resolved]
